FAERS Safety Report 4666397-2 (Version None)
Quarter: 2005Q2

REPORT INFORMATION
  Report Type: 
  Country: None (occurrence: None)
  Receive Date: 20050519
  Receipt Date: 20050513
  Transmission Date: 20051028
  Serious: Yes (Hospitalization)
  Sender: FDA-Public Use
  Company Number: 2005SE02899

PATIENT
  Age: 19 Year
  Sex: Female

DRUGS (5)
  1. SEROQUEL [Suspect]
     Indication: DEPRESSION
     Route: 048
     Dates: end: 20050101
  2. DICLOFENAK [Suspect]
     Route: 048
     Dates: start: 20050222, end: 20050302
  3. TIKACILLIN [Suspect]
     Indication: TONSILLITIS
     Route: 048
     Dates: start: 20050201, end: 20050302
  4. CITALOPRAM [Concomitant]
     Route: 048
  5. ALVEDON [Concomitant]

REACTIONS (4)
  - FLUID RETENTION [None]
  - PLEURAL EFFUSION [None]
  - PULMONARY ARTERIAL PRESSURE INCREASED [None]
  - TONSILLITIS [None]
